FAERS Safety Report 24385870 (Version 2)
Quarter: 2024Q4

REPORT INFORMATION
  Report Type: Spontaneous
  Country: CN (occurrence: CN)
  Receive Date: 20241001
  Receipt Date: 20241108
  Transmission Date: 20250114
  Serious: Yes (Other)
  Sender: TAKEDA
  Company Number: CN-TAKEDA-2024TUS096736

PATIENT
  Age: 77 Year
  Sex: Female
  Weight: 65 kg

DRUGS (1)
  1. NESINA [Suspect]
     Active Substance: ALOGLIPTIN BENZOATE
     Indication: Type 2 diabetes mellitus
     Dosage: 25 MILLIGRAM, QD
     Route: 048
     Dates: start: 20240923, end: 20240925

REACTIONS (3)
  - Blood glucose increased [Unknown]
  - Blood pressure increased [Unknown]
  - Dizziness [Unknown]

NARRATIVE: CASE EVENT DATE: 20240925
